FAERS Safety Report 12586603 (Version 2)
Quarter: 2018Q1

REPORT INFORMATION
  Report Type: Spontaneous
  Country: US (occurrence: US)
  Receive Date: 20160725
  Receipt Date: 20180312
  Transmission Date: 20180508
  Serious: No
  Sender: FDA-Public Use
  Company Number: US-PFIZER INC-2016325112

PATIENT
  Age: 61 Year
  Sex: Female

DRUGS (2)
  1. NAPROSYN [Suspect]
     Active Substance: NAPROXEN
     Dosage: UNK
  2. IBUPROFEN. [Suspect]
     Active Substance: IBUPROFEN
     Dosage: UNK

REACTIONS (3)
  - Abdominal discomfort [Unknown]
  - Drug hypersensitivity [Unknown]
  - Drug intolerance [Unknown]

NARRATIVE: CASE EVENT DATE: 20080716
